FAERS Safety Report 5767933-5 (Version None)
Quarter: 2008Q2

REPORT INFORMATION
  Report Type: 
  Country: None (occurrence: None)
  Receive Date: 20080601
  Receipt Date: 20080312
  Transmission Date: 20081010
  Serious: No
  Sender: FDA-Public Use
  Company Number: US200802006225

PATIENT
  Age: 68 Year
  Sex: Male
  Weight: 104.8 kg

DRUGS (20)
  1. BYETTA [Suspect]
     Indication: TYPE 2 DIABETES MELLITUS
     Dosage: 5 UG, 2/D, SUBCUTANEOUS ; 10 UG, 2/D
     Route: 059
     Dates: start: 20060201, end: 20060501
  2. BYETTA [Suspect]
     Indication: TYPE 2 DIABETES MELLITUS
     Dosage: 5 UG, 2/D, SUBCUTANEOUS ; 10 UG, 2/D
     Route: 059
     Dates: start: 20060501
  3. NORVASC [Concomitant]
  4. TRAMADOL HCL [Concomitant]
  5. DIOVAN (HYDROCHLOROTHIAZIDE, VALSARTAN) [Concomitant]
  6. NOVOLOG [Concomitant]
  7. VALIUM [Concomitant]
  8. ATENOLOL [Concomitant]
  9. TRICOR [Concomitant]
  10. PROVIGIL [Concomitant]
  11. ALLEGRA [Concomitant]
  12. ASPIRIN [Concomitant]
  13. PLAVIX [Concomitant]
  14. AVANIDA /SCH/ (ROSIGLITAZONE MALEATE) [Concomitant]
  15. WELCHOL [Concomitant]
  16. AVAPRO [Concomitant]
  17. RESTASIS (CICLOSPORIN) [Concomitant]
  18. FLUCONAZOLE [Concomitant]
  19. CILOSTAZOL [Concomitant]
  20. ZEASORB (ALDIOXA, CELLULOSE MICROCRYSTALLINE, CHLOROXYLENOL) [Concomitant]

REACTIONS (8)
  - BLOOD TESTOSTERONE DECREASED [None]
  - CONSTIPATION [None]
  - HYPERTENSION [None]
  - NEUROPATHY PERIPHERAL [None]
  - PAIN IN EXTREMITY [None]
  - RHINORRHOEA [None]
  - TINEA CRURIS [None]
  - WEIGHT DECREASED [None]
